FAERS Safety Report 8657644 (Version 2)
Quarter: 2012Q4

REPORT INFORMATION
  Report Type: Report from Study
  Country: JP (occurrence: JP)
  Receive Date: 20120710
  Receipt Date: 20120927
  Transmission Date: 20130627
  Serious: No
  Sender: FDA-Public Use
  Company Number: JP-SANOFI-AVENTIS-2012SA046891

PATIENT
  Age: 73 Year
  Sex: Male
  Weight: 57 kg

DRUGS (5)
  1. OXALIPLATIN [Suspect]
     Indication: COLON CANCER
     Route: 041
     Dates: start: 20111222, end: 20111222
  2. CALCIUM LEVOFOLINATE [Concomitant]
     Dates: start: 20111222, end: 20111222
  3. 5-FU [Concomitant]
     Route: 040
     Dates: start: 20111222, end: 20111222
  4. 5-FU [Concomitant]
     Dosage: dose: 3792 mg/body/d 1-2 (2400 mg/m^2/d1-2) as continuous infusion
     Route: 041
     Dates: start: 20111222, end: 20111222
  5. DEXAMETHASONE [Concomitant]
     Dates: start: 20111222, end: 20111222

REACTIONS (2)
  - Transient ischaemic attack [Recovered/Resolved]
  - Hiccups [Unknown]
